FAERS Safety Report 7742890 (Version 5)
Quarter: 2013Q1

REPORT INFORMATION
  Report Type: Spontaneous
  Country: GB (occurrence: GB)
  Receive Date: 20101229
  Receipt Date: 20130227
  Transmission Date: 20140127
  Serious: Yes (Hospitalization)
  Sender: FDA-Public Use
  Company Number: PHFR2010GB05906

PATIENT
  Age: 32 Year
  Sex: Male

DRUGS (5)
  1. CLOZARIL [Suspect]
     Indication: SCHIZOPHRENIA
     Dosage: 100 MG MANE, 400 MG NOCTE
     Route: 048
     Dates: start: 20060222
  2. CLOZARIL [Suspect]
     Dosage: UNK UKN, UNK
  3. CLOZARIL [Suspect]
     Dosage: 500 MG, UNK
     Route: 048
     Dates: start: 201101
  4. SERTRALINE [Concomitant]
     Indication: DEPRESSION
     Dosage: 100 MG, UNK
     Route: 048
  5. SERTRALINE [Concomitant]
     Dosage: 200 MG, UNK
     Dates: start: 201101

REACTIONS (3)
  - Pneumocystis jirovecii pneumonia [Recovered/Resolved]
  - Atypical pneumonia [Recovered/Resolved]
  - H1N1 influenza [Recovered/Resolved]
